FAERS Safety Report 25245911 (Version 3)
Quarter: 2025Q4

REPORT INFORMATION
  Report Type: Other
  Country: US (occurrence: US)
  Receive Date: 20250428
  Receipt Date: 20251231
  Transmission Date: 20260117
  Serious: No
  Sender: TRAVERE THERAPEUTICS
  Company Number: US-TRAVERE-2025TVT00310

PATIENT
  Sex: Male

DRUGS (1)
  1. FILSPARI [Suspect]
     Active Substance: SPARSENTAN
     Indication: IgA nephropathy
     Route: 048
     Dates: start: 202501

REACTIONS (5)
  - Pruritus [Unknown]
  - Dry skin [Unknown]
  - Hyperaesthesia teeth [Unknown]
  - Gingival pain [Unknown]
  - Hydrocele [Recovered/Resolved]
